FAERS Safety Report 5417250-8 (Version None)
Quarter: 2007Q3

REPORT INFORMATION
  Report Type: 
  Country: None (occurrence: None)
  Receive Date: 20070816
  Receipt Date: 20070810
  Transmission Date: 20080115
  Serious: Yes (Hospitalization)
  Sender: FDA-Public Use
  Company Number: US-SHR-US-2007-016769

PATIENT
  Age: 38 Year
  Sex: Female
  Weight: 69.841 kg

DRUGS (8)
  1. BETASERON [Suspect]
     Indication: RELAPSING-REMITTING MULTIPLE SCLEROSIS
     Dosage: 8 MIU, EVERY 2D
     Route: 058
     Dates: start: 20050520
  2. BETASERON [Suspect]
     Dosage: 8 MIU, EVERY 2D
     Route: 058
     Dates: start: 20060804
  3. BETASERON [Suspect]
     Dosage: 8 MIU, EVERY 2D
     Route: 058
     Dates: start: 20070420
  4. DETROL [Concomitant]
     Dosage: 4 MG, 1X/DAY
     Dates: start: 20050101
  5. TOPAMAX [Suspect]
     Dosage: 100 MG, 2X/DAY
     Dates: start: 20050101, end: 20050101
  6. TOPAMAX [Suspect]
     Dosage: 50 MG, 2X/DAY
     Dates: start: 20050101, end: 20050101
  7. TOPAMAX [Suspect]
     Route: 048
     Dates: start: 20050101, end: 20070523
  8. PROVIGIL [Concomitant]
     Dosage: 100 MG, 2X/DAY
     Dates: start: 20050101

REACTIONS (3)
  - DRUG SPECIFIC ANTIBODY PRESENT [None]
  - INJECTION SITE BRUISING [None]
  - NEPHROLITHIASIS [None]
